FAERS Safety Report 8151643-3 (Version None)
Quarter: 2012Q1

REPORT INFORMATION
  Report Type: 
  Country: None (occurrence: None)
  Receive Date: 20120220
  Receipt Date: 20120206
  Transmission Date: 20120608
  Serious: Yes (Life-Threatening, Hospitalization)
  Sender: FDA-Public Use
  Company Number: US-ROCHE-1017295

PATIENT
  Sex: Female

DRUGS (15)
  1. HYPERICUM PERFORATUM [Suspect]
     Indication: MAJOR DEPRESSION
     Dosage: REPORTED: ST JOHN'S WORT
  2. CALCIUM [Concomitant]
  3. VITAMIN D [Concomitant]
  4. POTASSIUM CHLORIDE [Concomitant]
     Route: 048
  5. ASPIRIN [Concomitant]
     Route: 048
  6. RITUXAN [Suspect]
     Indication: RHEUMATOID ARTHRITIS
     Dates: start: 20090201
  7. FISH OIL [Concomitant]
  8. LEVOTHYROXINE SODIUM [Concomitant]
     Indication: HYPOTHYROIDISM
     Route: 048
  9. FOLIC ACID [Concomitant]
  10. VITAMIN B COMPLEX CAP [Concomitant]
  11. SIMVASTATIN [Concomitant]
     Indication: HYPERCHOLESTEROLAEMIA
     Route: 048
  12. ARAVA [Concomitant]
  13. MAGNESIUM [Concomitant]
  14. LASIX [Concomitant]
     Indication: CARDIAC FAILURE CHRONIC
     Route: 048
  15. PREVACID [Concomitant]

REACTIONS (19)
  - DYSPNOEA [None]
  - CHEST DISCOMFORT [None]
  - INFUSION RELATED REACTION [None]
  - ERYTHEMA [None]
  - FLUID OVERLOAD [None]
  - BLOOD PRESSURE INCREASED [None]
  - ALOPECIA [None]
  - SNEEZING [None]
  - ASTHENIA [None]
  - WEIGHT INCREASED [None]
  - EXTRASYSTOLES [None]
  - DIZZINESS [None]
  - FATIGUE [None]
  - HEART RATE INCREASED [None]
  - PARAESTHESIA [None]
  - COLD SWEAT [None]
  - MAJOR DEPRESSION [None]
  - CARDIAC FAILURE CONGESTIVE [None]
  - TREMOR [None]
